FAERS Safety Report 12521779 (Version 3)
Quarter: 2016Q4

REPORT INFORMATION
  Report Type: Report from Study
  Country: US (occurrence: US)
  Receive Date: 20160701
  Receipt Date: 20161101
  Transmission Date: 20170207
  Serious: Yes (Hospitalization, Other)
  Sender: FDA-Public Use
  Company Number: US-SA-2016SA119925

PATIENT
  Age: 62 Year
  Sex: Female

DRUGS (6)
  1. AMITRIPTYLINE [Concomitant]
     Active Substance: AMITRIPTYLINE
  2. AMANTADINE [Concomitant]
     Active Substance: AMANTADINE
     Indication: FATIGUE
     Dosage: 2X DAILY
  3. AMPYRA [Concomitant]
     Active Substance: DALFAMPRIDINE
     Dosage: 2X PER DAY
  4. LEMTRADA [Suspect]
     Active Substance: ALEMTUZUMAB
     Indication: MULTIPLE SCLEROSIS
     Route: 041
     Dates: start: 20151130, end: 20151204
  5. ELAVIL [Concomitant]
     Active Substance: AMITRIPTYLINE HYDROCHLORIDE
     Indication: GAIT DISTURBANCE
  6. GABAPENTIN. [Concomitant]
     Active Substance: GABAPENTIN
     Indication: ATAXIA
     Dosage: 1600 OR GREATER

REACTIONS (4)
  - Abasia [Not Recovered/Not Resolved]
  - Tremor [Not Recovered/Not Resolved]
  - Multiple sclerosis relapse [Unknown]
  - Dysuria [Unknown]

NARRATIVE: CASE EVENT DATE: 201603
